FAERS Safety Report 9530706 (Version 1)
Quarter: 2013Q3

REPORT INFORMATION
  Report Type: Spontaneous
  Country: FR (occurrence: FR)
  Receive Date: 20130918
  Receipt Date: 20130918
  Transmission Date: 20140515
  Serious: Yes (Hospitalization)
  Sender: FDA-Public Use
  Company Number: FR-ASTRAZENECA-2013SE68676

PATIENT
  Age: 32501 Day
  Sex: Male

DRUGS (9)
  1. HYTACAND [Suspect]
     Indication: HYPERTENSION
     Dosage: 16/12.5 MG, DAILY.
     Route: 048
     Dates: end: 20130803
  2. DIGOXINE NATIVELLE [Suspect]
     Indication: ATRIAL FIBRILLATION
     Route: 048
     Dates: start: 201204, end: 20130803
  3. CORDARONE [Suspect]
     Indication: ATRIAL FIBRILLATION
     Route: 048
     Dates: end: 20130803
  4. LASILIX FAIBLE [Suspect]
     Indication: ATRIAL FIBRILLATION
     Route: 065
     Dates: end: 20130803
  5. KARDEGIC [Concomitant]
  6. DAFALGAN [Concomitant]
  7. INEXIUM [Concomitant]
  8. TADENAN [Concomitant]
  9. XATRAL [Concomitant]

REACTIONS (6)
  - Cardioactive drug level increased [Recovered/Resolved]
  - Syncope [Recovered/Resolved]
  - Loss of consciousness [Recovered/Resolved]
  - Sinus bradycardia [Recovered/Resolved]
  - Fall [Unknown]
  - Malaise [Unknown]
